FAERS Safety Report 10709163 (Version 2)
Quarter: 2015Q1

REPORT INFORMATION
  Report Type: Spontaneous
  Country: US (occurrence: US)
  Receive Date: 20150114
  Receipt Date: 20150327
  Transmission Date: 20150721
  Serious: No
  Sender: FDA-Public Use
  Company Number: US-AMGEN-USASP2015001121

PATIENT
  Age: 50 Year
  Sex: Male
  Weight: 72.56 kg

DRUGS (2)
  1. ENBREL [Suspect]
     Active Substance: ETANERCEPT
     Indication: PSORIASIS
  2. ENBREL [Suspect]
     Active Substance: ETANERCEPT
     Indication: RHEUMATOID ARTHRITIS
     Dosage: 50 MG, QWK
     Route: 058
     Dates: start: 20080924

REACTIONS (7)
  - Dysphonia [Not Recovered/Not Resolved]
  - Dysuria [Recovered/Resolved]
  - Psoriasis [Recovered/Resolved]
  - Influenza [Not Recovered/Not Resolved]
  - Skin haemorrhage [Recovered/Resolved]
  - Sinus headache [Not Recovered/Not Resolved]
  - Scratch [Recovered/Resolved]

NARRATIVE: CASE EVENT DATE: 20131113
